FAERS Safety Report 26069543 (Version 1)
Quarter: 2025Q4

REPORT INFORMATION
  Report Type: Spontaneous
  Country: EU (occurrence: EU)
  Receive Date: 20251120
  Receipt Date: 20251120
  Transmission Date: 20260118
  Serious: Yes (Other)
  Sender: RANBAXY
  Company Number: EU-SUN PHARMACEUTICAL INDUSTRIES LTD-2025RR-534579

PATIENT
  Age: 50 Year
  Sex: Female

DRUGS (1)
  1. SUMATRIPTAN [Suspect]
     Active Substance: SUMATRIPTAN
     Indication: Migraine
     Dosage: 100 MILLIGRAM, UNK
     Route: 048

REACTIONS (11)
  - Hypoaesthesia [Unknown]
  - Paraesthesia [Unknown]
  - Dizziness [Unknown]
  - Skin burning sensation [Unknown]
  - Flushing [Unknown]
  - Dyspnoea [Unknown]
  - Chest discomfort [Unknown]
  - Pain [Unknown]
  - Blood pressure increased [Unknown]
  - Throat tightness [Unknown]
  - Therapy cessation [Unknown]
